FAERS Safety Report 8765369 (Version 7)
Quarter: 2013Q1

REPORT INFORMATION
  Report Type: Spontaneous
  Country: JP (occurrence: JP)
  Receive Date: 20120831
  Receipt Date: 20130314
  Transmission Date: 20140127
  Serious: Yes (Life-Threatening, Hospitalization, Disabling, Other)
  Sender: FDA-Public Use
  Company Number: JP-JNJFOC-20120812810

PATIENT
  Age: 87 None
  Sex: Male
  Weight: 50 kg

DRUGS (7)
  1. TRAMCET [Suspect]
     Indication: PAIN
     Dosage: ONE PER ONE DAY
     Route: 048
     Dates: start: 20120729, end: 20120731
  2. LOXOPROFEN SODIUM [Concomitant]
     Indication: PRODUCT USED FOR UNKNOWN INDICATION
     Route: 065
     Dates: start: 20120704, end: 20120716
  3. DICLOFENAC SODIUM [Concomitant]
     Route: 065
     Dates: start: 20120724
  4. OXYGEN [Concomitant]
     Route: 065
  5. ENSURE [Concomitant]
     Route: 051
  6. ONEALFA [Concomitant]
     Route: 048
  7. ADOAIR [Concomitant]
     Route: 065

REACTIONS (7)
  - Hallucination [Recovered/Resolved with Sequelae]
  - Dyskinesia [Not Recovered/Not Resolved]
  - Tremor [Not Recovered/Not Resolved]
  - Pneumonia aspiration [Not Recovered/Not Resolved]
  - Abnormal behaviour [Recovered/Resolved with Sequelae]
  - Dementia [Unknown]
  - Abnormal behaviour [Recovered/Resolved]
